FAERS Safety Report 22646358 (Version 1)
Quarter: 2023Q2

REPORT INFORMATION
  Report Type: Spontaneous
  Country: DE (occurrence: DE)
  Receive Date: 20230627
  Receipt Date: 20230627
  Transmission Date: 20230721
  Serious: Yes (Other)
  Sender: FDA-Public Use
  Company Number: DE-Covis Pharma-18732

PATIENT
  Sex: Male

DRUGS (2)
  1. ALVESCO [Suspect]
     Active Substance: CICLESONIDE
     Indication: Asthma
     Route: 055
  2. ALVESCO [Suspect]
     Active Substance: CICLESONIDE

REACTIONS (1)
  - Cataract [Unknown]
